FAERS Safety Report 6484796-3 (Version None)
Quarter: 2009Q4

REPORT INFORMATION
  Report Type: 
  Country: None (occurrence: None)
  Receive Date: 20091209
  Receipt Date: 20090227
  Transmission Date: 20100525
  Serious: No
  Sender: FDA-Public Use
  Company Number: A0770929A

PATIENT
  Sex: Male

DRUGS (5)
  1. AVANDAMET [Suspect]
     Dosage: .5TAB PER DAY
     Route: 048
  2. GLIPIZIDE [Concomitant]
  3. ASPIRIN [Concomitant]
  4. BENAZAPRIL [Concomitant]
  5. ZOCOR [Concomitant]

REACTIONS (2)
  - DYSPEPSIA [None]
  - GASTROOESOPHAGEAL REFLUX DISEASE [None]
